FAERS Safety Report 5555528-8 (Version None)
Quarter: 2007Q4

REPORT INFORMATION
  Report Type: 
  Country: None (occurrence: None)
  Receive Date: 20071213
  Receipt Date: 20070821
  Transmission Date: 20080405
  Serious: No
  Sender: FDA-Public Use
  Company Number: US-AMGEN-KDL239656

PATIENT

DRUGS (2)
  1. ENBREL [Suspect]
     Indication: PSORIASIS
  2. ISONIAZID [Suspect]

REACTIONS (2)
  - PSORIASIS [None]
  - TUBERCULOSIS SKIN TEST POSITIVE [None]
